FAERS Safety Report 24061833 (Version 2)
Quarter: 2024Q3

REPORT INFORMATION
  Report Type: Spontaneous
  Country: US (occurrence: US)
  Receive Date: 20240708
  Receipt Date: 20240826
  Transmission Date: 20241016
  Serious: No
  Sender: BAYER
  Company Number: US-BAYER-2024A094804

PATIENT
  Age: 58 Year
  Sex: Female

DRUGS (1)
  1. CLIMARA PRO [Suspect]
     Active Substance: ESTRADIOL\LEVONORGESTREL
     Indication: Menopause
     Dosage: UNK
     Route: 062
     Dates: start: 2012

REACTIONS (6)
  - Dermatitis contact [Not Recovered/Not Resolved]
  - Application site erythema [Not Recovered/Not Resolved]
  - Application site pruritus [Not Recovered/Not Resolved]
  - Application site rash [Not Recovered/Not Resolved]
  - Application site pain [Not Recovered/Not Resolved]
  - Application site swelling [Not Recovered/Not Resolved]

NARRATIVE: CASE EVENT DATE: 20231101
